FAERS Safety Report 5153244-8 (Version None)
Quarter: 2006Q4

REPORT INFORMATION
  Report Type: 
  Country: None (occurrence: None)
  Receive Date: 20061102
  Receipt Date: 20061102
  Transmission Date: 20070319
  Serious: No
  Sender: FDA-Public Use
  Company Number: None

PATIENT

DRUGS (2)
  1. ALOE VESTA 2 IN 1 ANTIFUNGAL OINTMENT [Suspect]
     Dosage: OINTMENT
  2. ALOE VESTA 2 IN 1 PROTECTIVE OINTMENT [Suspect]
     Dosage: OINTMENT

REACTIONS (1)
  - MEDICATION ERROR [None]
